FAERS Safety Report 8106830-7 (Version None)
Quarter: 2012Q1

REPORT INFORMATION
  Report Type: 
  Country: None (occurrence: None)
  Receive Date: 20120202
  Receipt Date: 20120124
  Transmission Date: 20120608
  Serious: Yes (Death)
  Sender: FDA-Public Use
  Company Number: US-ASTELLAS-2012US000411

PATIENT
  Sex: Male

DRUGS (1)
  1. TARCEVA [Suspect]
     Indication: GASTROOESOPHAGEAL CANCER
     Dosage: UNK
     Route: 048

REACTIONS (3)
  - NEOPLASM MALIGNANT [None]
  - RASH [None]
  - OFF LABEL USE [None]
